FAERS Safety Report 13477643 (Version 2)
Quarter: 2019Q1

REPORT INFORMATION
  Report Type: Spontaneous
  Country: US (occurrence: US)
  Receive Date: 20170425
  Receipt Date: 20190102
  Transmission Date: 20190417
  Serious: No
  Sender: FDA-Public Use
  Company Number: US-009507513-1704USA005040

PATIENT
  Sex: Female

DRUGS (1)
  1. NUVARING [Suspect]
     Active Substance: ETHINYL ESTRADIOL\ETONOGESTREL
     Dosage: 1 RING 3 WEEKS IN, 6 DAYS OUT
     Route: 067

REACTIONS (3)
  - Inappropriate schedule of product administration [Unknown]
  - No adverse event [Unknown]
  - Incorrect product administration duration [Unknown]
